FAERS Safety Report 6838499-3 (Version None)
Quarter: 2010Q3

REPORT INFORMATION
  Report Type: 
  Country: None (occurrence: None)
  Receive Date: 20100713
  Receipt Date: 20070613
  Transmission Date: 20110219
  Serious: Yes (Other)
  Sender: FDA-Public Use
  Company Number: US-PFIZER INC-2007049643

PATIENT
  Sex: Female
  Weight: 74.8 kg

DRUGS (7)
  1. CHANTIX [Suspect]
     Indication: EX-TOBACCO USER
     Dates: start: 20070604
  2. CYMBALTA [Concomitant]
  3. HYDROCODONE BITARTRATE [Concomitant]
  4. TRAZODONE HYDROCHLORIDE [Concomitant]
  5. MOBIC [Concomitant]
  6. SKELAXIN [Concomitant]
  7. LIPITOR [Concomitant]

REACTIONS (1)
  - SOMNOLENCE [None]
